FAERS Safety Report 6603562-9 (Version None)
Quarter: 2010Q1

REPORT INFORMATION
  Report Type: 
  Country: None (occurrence: None)
  Receive Date: 20100226
  Receipt Date: 20091027
  Transmission Date: 20100710
  Serious: No
  Sender: FDA-Public Use
  Company Number: A0811179A

PATIENT
  Age: 61 Year
  Sex: Female

DRUGS (2)
  1. VALTREX [Suspect]
     Indication: DRUG USE FOR UNKNOWN INDICATION
     Dosage: 1G TWICE PER DAY
     Route: 048
     Dates: start: 20090701
  2. NONE [Concomitant]

REACTIONS (2)
  - PRURITUS [None]
  - URTICARIA [None]
